FAERS Safety Report 4773835-3 (Version None)
Quarter: 2005Q3

REPORT INFORMATION
  Report Type: 
  Country: None (occurrence: None)
  Receive Date: 20050919
  Receipt Date: 20050909
  Transmission Date: 20060218
  Serious: Yes (Hospitalization)
  Sender: FDA-Public Use
  Company Number: HQWYE337609SEP05

PATIENT
  Age: 3 Year
  Sex: Male

DRUGS (10)
  1. RAPAMUNE [Suspect]
     Indication: PROPHYLAXIS AGAINST TRANSPLANT REJECTION
     Dates: start: 20050722
  2. BACTRIM [Concomitant]
  3. NEXIUM [Concomitant]
  4. SPECIAFOLDINE (FOLIC ACID) [Concomitant]
  5. VITAMIN B12 [Concomitant]
  6. MYCOPHENOLATE MOFETIL (MYCOPHENOLATE MOFETIL) [Concomitant]
  7. ZENAPAX [Concomitant]
  8. CYCLOSPORINE [Concomitant]
  9. PREDNISONE [Concomitant]
  10. SOLU-MEDROL [Concomitant]

REACTIONS (1)
  - CARDIAC FLUTTER [None]
